FAERS Safety Report 8234461-7 (Version None)
Quarter: 2012Q1

REPORT INFORMATION
  Report Type: 
  Country: None (occurrence: None)
  Receive Date: 20120326
  Receipt Date: 20120315
  Transmission Date: 20120608
  Serious: Yes (Other)
  Sender: FDA-Public Use
  Company Number: JP-ELI_LILLY_AND_COMPANY-JP201203004492

PATIENT
  Age: 75 Year
  Sex: Male

DRUGS (4)
  1. VITAMIN B-12 [Concomitant]
  2. CARBOPLATIN [Concomitant]
  3. ALIMTA [Suspect]
     Indication: NON-SMALL CELL LUNG CANCER
     Route: 042
  4. FOLIC ACID [Concomitant]

REACTIONS (1)
  - ULCER HAEMORRHAGE [None]
